FAERS Safety Report 8346468-X (Version None)
Quarter: 2012Q2

REPORT INFORMATION
  Report Type: 
  Country: None (occurrence: None)
  Receive Date: 20120509
  Receipt Date: 20120508
  Transmission Date: 20120825
  Serious: Yes (Other)
  Sender: FDA-Public Use
  Company Number: MX-PFIZER INC-2012112273

PATIENT
  Age: 28 Year
  Sex: Female

DRUGS (2)
  1. VARENICLINE TARTRATE [Suspect]
     Indication: SMOKING CESSATION THERAPY
     Dosage: 0.5 MG, 2X/DAY
     Route: 048
     Dates: start: 20120416
  2. VITAMIN E [Concomitant]
     Dosage: 1 CAPSULE, 1X/DAY
     Dates: start: 20120411

REACTIONS (5)
  - SOMNOLENCE [None]
  - MOOD ALTERED [None]
  - NAUSEA [None]
  - CONVERSION DISORDER [None]
  - HEADACHE [None]
